FAERS Safety Report 6234056-0 (Version None)
Quarter: 2009Q2

REPORT INFORMATION
  Report Type: 
  Country: None (occurrence: None)
  Receive Date: 20090618
  Receipt Date: 20090527
  Transmission Date: 20091009
  Serious: Yes (Other)
  Sender: FDA-Public Use
  Company Number: PHHY2009RU21115

PATIENT
  Age: 37 Year
  Sex: Female

DRUGS (2)
  1. ZADITEN [Suspect]
     Indication: CONJUNCTIVITIS ALLERGIC
     Dosage: UNK
     Dates: start: 20090525
  2. ZADITEN [Suspect]
     Dosage: UNK
     Dates: start: 20090527

REACTIONS (6)
  - DIZZINESS [None]
  - DYSPNOEA [None]
  - GASTROINTESTINAL DISORDER [None]
  - HYPOTONIA [None]
  - LOSS OF CONSCIOUSNESS [None]
  - NAUSEA [None]
